FAERS Safety Report 7760834-2 (Version None)
Quarter: 2011Q3

REPORT INFORMATION
  Report Type: 
  Country: None (occurrence: None)
  Receive Date: 20110919
  Receipt Date: 20110914
  Transmission Date: 20111222
  Serious: Yes (Other)
  Sender: FDA-Public Use
  Company Number: JP-PFIZER INC-2011201374

PATIENT
  Age: 76 Year
  Sex: Male

DRUGS (6)
  1. LYRICA [Suspect]
     Dosage: 150 MG, 2X/DAY
     Route: 048
     Dates: start: 20110730, end: 20110805
  2. LANSOPRAZOLE [Concomitant]
     Indication: GASTROOESOPHAGEAL REFLUX DISEASE
     Dosage: 15 MG, 1X/DAY
     Route: 048
     Dates: start: 20051020
  3. ZOLPIDEM [Suspect]
     Indication: INSOMNIA
     Dosage: 10 MG, 1X/DAY
     Route: 048
     Dates: start: 20051020
  4. METHISTA [Concomitant]
     Indication: EMPHYSEMA
     Dosage: 500 MG, 2X/DAY
     Route: 048
     Dates: start: 20051020
  5. LYRICA [Suspect]
     Indication: HYPOAESTHESIA
     Dosage: 150MG DAILY
     Route: 048
     Dates: start: 20110307, end: 20110430
  6. SPIRIVA [Concomitant]
     Indication: EMPHYSEMA
     Dosage: 2.5 MG, 1X/DAY
     Route: 048
     Dates: start: 20090901

REACTIONS (3)
  - DIPLOPIA [None]
  - ROAD TRAFFIC ACCIDENT [None]
  - DRUG INEFFECTIVE [None]
